FAERS Safety Report 25588528 (Version 1)
Quarter: 2025Q3

REPORT INFORMATION
  Report Type: Spontaneous
  Country: TR (occurrence: TR)
  Receive Date: 20250722
  Receipt Date: 20250722
  Transmission Date: 20251020
  Serious: Yes (Death, Hospitalization)
  Sender: MEDEXUS PHARMA
  Company Number: TR-MEDEXUS PHARMA, INC.-2025MED00209

PATIENT
  Age: 34 Year
  Sex: Female

DRUGS (10)
  1. METHOTREXATE [Suspect]
     Active Substance: METHOTREXATE
     Indication: Acute lymphocytic leukaemia
     Route: 037
     Dates: start: 202412
  2. METHOTREXATE [Suspect]
     Active Substance: METHOTREXATE
     Dosage: 1000 MG/M2, 1X/DAY
     Dates: start: 20250106
  3. METHOTREXATE [Suspect]
     Active Substance: METHOTREXATE
     Route: 037
     Dates: start: 2025
  4. CYCLOPHOSPHAMIDE [Concomitant]
     Active Substance: CYCLOPHOSPHAMIDE
     Indication: Acute lymphocytic leukaemia
     Dates: start: 202412
  5. VINCRISTINE [Concomitant]
     Active Substance: VINCRISTINE
     Indication: Acute lymphocytic leukaemia
     Dosage: 2 MG, 1X/DAY
     Dates: start: 202412
  6. ADRIAMYCIN [Concomitant]
     Active Substance: DOXORUBICIN HYDROCHLORIDE
     Indication: Acute lymphocytic leukaemia
     Dosage: 40 MG/M2, 1X/DAY
     Dates: start: 202412
  7. DECORT [Concomitant]
     Indication: Acute lymphocytic leukaemia
     Dosage: 40 MG, 1X/DAY
     Dates: start: 202412
  8. CYTARABINE [Concomitant]
     Active Substance: CYTARABINE
     Indication: Acute lymphocytic leukaemia
     Dates: start: 202412
  9. CYTARABINE [Concomitant]
     Active Substance: CYTARABINE
     Dates: start: 20250106, end: 20250107
  10. CYTARABINE [Concomitant]
     Active Substance: CYTARABINE
     Dates: start: 2025

REACTIONS (2)
  - Multiple organ dysfunction syndrome [Fatal]
  - Toxic epidermal necrolysis [Not Recovered/Not Resolved]

NARRATIVE: CASE EVENT DATE: 20250101
